FAERS Safety Report 7951522-8 (Version None)
Quarter: 2011Q4

REPORT INFORMATION
  Report Type: 
  Country: None (occurrence: None)
  Receive Date: 20111201
  Receipt Date: 20111116
  Transmission Date: 20120403
  Serious: Yes (Death)
  Sender: FDA-Public Use
  Company Number: JP-AMGEN-JPNSP2011060869

PATIENT
  Age: 15 Year
  Sex: Female
  Weight: 39 kg

DRUGS (18)
  1. ROMIPLATE [Suspect]
     Indication: THROMBOCYTOPENIC PURPURA
     Dosage: 125 MUG/KG, UNK
     Route: 058
     Dates: start: 20111020, end: 20111103
  2. VANCOMYCIN [Concomitant]
     Route: 041
     Dates: start: 20111018, end: 20111025
  3. PREDNISOLONE [Concomitant]
     Indication: GRAFT VERSUS HOST DISEASE
     Dosage: 25 MG, TID
     Route: 040
     Dates: start: 20111019, end: 20111110
  4. PREDNISOLONE [Concomitant]
     Route: 040
     Dates: start: 20111019, end: 20111110
  5. GRAN [Concomitant]
     Route: 040
     Dates: start: 20111019, end: 20111027
  6. MEROPENEM [Concomitant]
     Indication: SEPSIS
     Dosage: UNCERTAINTY
     Route: 041
     Dates: start: 20111018, end: 20111107
  7. FAMOTIDINE [Concomitant]
     Dosage: UNCERTAINTY
     Route: 065
  8. MEROPENEM [Concomitant]
     Route: 041
     Dates: start: 20111018, end: 20111107
  9. FUNGUARD [Concomitant]
     Indication: SYSTEMIC MYCOSIS
     Dosage: UNCERTAINTY
     Route: 041
     Dates: start: 20111018, end: 20111108
  10. RECOMODULIN [Concomitant]
     Route: 041
     Dates: start: 20111018, end: 20111031
  11. GRAN [Concomitant]
     Indication: NEUTROPENIA
     Dosage: UNCERTAINTY
     Route: 040
     Dates: start: 20111019, end: 20111027
  12. RECOMODULIN [Concomitant]
     Indication: DISSEMINATED INTRAVASCULAR COAGULATION
     Dosage: UNCERTAINTY
     Route: 041
     Dates: start: 20111018, end: 20111031
  13. HUMULIN R [Concomitant]
     Indication: HYPERGLYCAEMIA
     Dosage: 300 IU, QD
     Route: 041
     Dates: start: 20111022, end: 20111110
  14. FULCALIQ [Concomitant]
     Indication: NUTRITIONAL SUPPORT
     Dosage: 1500 ML, QD
     Route: 041
     Dates: start: 20111018, end: 20111110
  15. VANCOMYCIN [Concomitant]
     Indication: SEPSIS
     Dosage: UNCERTAINTY
     Route: 041
     Dates: start: 20111018, end: 20111025
  16. FUNGUARD [Concomitant]
     Dosage: UNCERTAINTY
     Route: 041
     Dates: start: 20111018, end: 20111108
  17. HUMULIN N [Concomitant]
     Dosage: UNCERTAINTY
     Route: 065
  18. ACYCLOVIR [Concomitant]
     Indication: HERPES VIRUS INFECTION
     Dosage: 400 MG, QD
     Route: 041
     Dates: start: 20111022, end: 20111110

REACTIONS (3)
  - GRAFT VERSUS HOST DISEASE [None]
  - SEPSIS [None]
  - SOFT TISSUE INFECTION [None]
